FAERS Safety Report 25814204 (Version 1)
Quarter: 2025Q3

REPORT INFORMATION
  Report Type: Spontaneous
  Country: CA (occurrence: CA)
  Receive Date: 20250917
  Receipt Date: 20250917
  Transmission Date: 20251020
  Serious: Yes (Death, Life-Threatening, Other)
  Sender: DR REDDYS
  Company Number: None

PATIENT
  Age: 56 Year
  Sex: Female

DRUGS (59)
  1. AZACITIDINE [Suspect]
     Active Substance: AZACITIDINE
     Indication: Acute myeloid leukaemia
  2. VENETOCLAX [Suspect]
     Active Substance: VENETOCLAX
     Indication: Acute myeloid leukaemia
     Route: 048
  3. VENETOCLAX [Suspect]
     Active Substance: VENETOCLAX
     Route: 048
  4. VENETOCLAX [Suspect]
     Active Substance: VENETOCLAX
     Route: 048
  5. VENETOCLAX [Suspect]
     Active Substance: VENETOCLAX
     Route: 048
  6. ALBUMIN (HUMAN) [Concomitant]
     Active Substance: ALBUMIN HUMAN
     Indication: Hypoalbuminaemia
     Route: 042
  7. ACETAMINOPHEN [Concomitant]
     Active Substance: ACETAMINOPHEN
     Indication: Pain
     Route: 048
  8. ALLOPURINOL [Concomitant]
     Active Substance: ALLOPURINOL
     Indication: Prophylaxis
     Route: 048
  9. AMOXICILLIN\CLAVULANATE POTASSIUM [Concomitant]
     Active Substance: AMOXICILLIN\CLAVULANATE POTASSIUM
     Indication: Prophylaxis
     Route: 048
  10. PANTOPRAZOLE SODIUM ANHYDROUS [Concomitant]
     Active Substance: PANTOPRAZOLE SODIUM ANHYDROUS
     Indication: Gastrointestinal disorder prophylaxis
     Route: 042
  11. ATORVASTATIN CALCIUM [Concomitant]
     Active Substance: ATORVASTATIN CALCIUM
     Indication: Hypercholesterolaemia
     Route: 048
  12. BUTYLSCOPOLAMINE BROMIDE [Concomitant]
     Active Substance: BUTYLSCOPOLAMINE BROMIDE
     Indication: Nausea
     Route: 048
  13. CALCIUM CARBONATE [Concomitant]
     Active Substance: CALCIUM CARBONATE
     Indication: Routine health maintenance
     Route: 048
  14. CLOBETASOL [Concomitant]
     Active Substance: CLOBETASOL
     Indication: Stasis dermatitis
  15. COMBIVENT [Concomitant]
     Active Substance: ALBUTEROL SULFATE\IPRATROPIUM BROMIDE
     Indication: Dyspnoea
  16. COVID-19 VACCINE MRNA [Concomitant]
     Indication: Product used for unknown indication
  17. DEXAMETHASONE ACETATE [Concomitant]
     Active Substance: DEXAMETHASONE ACETATE
     Indication: Prophylaxis of nausea and vomiting
     Route: 048
  18. DILAUDID [Concomitant]
     Active Substance: HYDROMORPHONE HYDROCHLORIDE
     Indication: Abdominal pain
     Route: 048
  19. DILAUDID [Concomitant]
     Active Substance: HYDROMORPHONE HYDROCHLORIDE
     Route: 048
  20. DILAUDID [Concomitant]
     Active Substance: HYDROMORPHONE HYDROCHLORIDE
     Indication: Abdominal pain
     Route: 042
  21. DIMENHYDRINATE [Concomitant]
     Active Substance: DIMENHYDRINATE
     Indication: Nausea
     Route: 048
  22. DIMENHYDRINATE [Concomitant]
     Active Substance: DIMENHYDRINATE
     Route: 048
  23. DOCUSATE SODIUM\SENNOSIDES [Concomitant]
     Active Substance: DOCUSATE SODIUM\SENNOSIDES
     Indication: Constipation prophylaxis
     Route: 048
  24. DOCUSATE SODIUM\SENNOSIDES [Concomitant]
     Active Substance: DOCUSATE SODIUM\SENNOSIDES
     Route: 048
  25. FLUCONAZOLE [Concomitant]
     Active Substance: FLUCONAZOLE
     Indication: Antifungal prophylaxis
     Route: 048
  26. FLUCONAZOLE [Concomitant]
     Active Substance: FLUCONAZOLE
     Route: 048
  27. HYDREA [Concomitant]
     Active Substance: HYDROXYUREA
     Indication: Tumour lysis syndrome
     Route: 048
  28. K DUR [Concomitant]
     Indication: Hypokalaemia
     Route: 048
  29. LABETALOL [Concomitant]
     Active Substance: LABETALOL
     Indication: Hypertension
     Route: 042
  30. LASIX [Concomitant]
     Active Substance: FUROSEMIDE
     Indication: Hypervolaemia
     Route: 048
  31. LASIX [Concomitant]
     Active Substance: FUROSEMIDE
     Route: 048
  32. LASIX [Concomitant]
     Active Substance: FUROSEMIDE
  33. LIDOCAINE [Concomitant]
     Active Substance: LIDOCAINE
     Indication: Stomatitis
  34. LOPERAMIDE [Concomitant]
     Active Substance: LOPERAMIDE
     Indication: Diarrhoea
     Route: 048
  35. LOPERAMIDE [Concomitant]
     Active Substance: LOPERAMIDE
     Route: 048
  36. MAGNESIUM SULFATE [Concomitant]
     Active Substance: MAGNESIUM SULFATE
     Indication: Hypomagnesaemia
     Route: 042
  37. MELATONIN [Concomitant]
     Active Substance: MELATONIN
     Indication: Insomnia
     Route: 048
  38. METOCLOPRAMIDE [Concomitant]
     Active Substance: METOCLOPRAMIDE
     Indication: Nausea
     Route: 048
  39. MIDAZOLAM [Concomitant]
     Active Substance: MIDAZOLAM
     Indication: Terminal state
     Route: 042
  40. MILK OF MAGNESIA [Concomitant]
     Active Substance: MAGNESIUM HYDROXIDE
     Indication: Dyspepsia
     Route: 048
  41. MORPHINE [Concomitant]
     Active Substance: MORPHINE
     Indication: Spina bifida
     Route: 037
  42. NITROGLYCERIN [Concomitant]
     Active Substance: NITROGLYCERIN
     Indication: Hypertension
     Route: 042
  43. NOREPINEPHRINE [Concomitant]
     Active Substance: NOREPINEPHRINE
     Indication: Blood pressure management
     Route: 042
  44. NYSTATIN [Concomitant]
     Active Substance: NYSTATIN
     Indication: Mucosal inflammation
  45. ONDANSETRON [Concomitant]
     Active Substance: ONDANSETRON
     Indication: Prophylaxis of nausea and vomiting
     Route: 048
  46. OXYGEN [Concomitant]
     Active Substance: OXYGEN
     Indication: Chronic obstructive pulmonary disease
  47. PANTOPRAZOLE [Concomitant]
     Active Substance: PANTOPRAZOLE
     Indication: Dyspepsia
     Route: 048
  48. PANTOPRAZOLE [Concomitant]
     Active Substance: PANTOPRAZOLE
     Route: 048
  49. PHENYTOIN [Concomitant]
     Active Substance: PHENYTOIN
     Indication: Seizure
     Route: 048
  50. PREGABALIN [Concomitant]
     Active Substance: PREGABALIN
     Indication: Spina bifida
     Route: 048
  51. RIVAROXABAN [Concomitant]
     Active Substance: RIVAROXABAN
     Indication: Peripheral vascular disorder
     Route: 048
  52. SODIUM PHOSPHATE [Concomitant]
     Active Substance: SODIUM PHOSPHATE
     Indication: Hypophosphataemia
     Route: 042
  53. VALACYCLOVIR [Concomitant]
     Active Substance: VALACYCLOVIR HYDROCHLORIDE
     Indication: Antiviral prophylaxis
     Route: 048
  54. TRIAMCINOLONE [Concomitant]
     Active Substance: TRIAMCINOLONE
     Indication: Stasis dermatitis
  55. VANCOMYCIN [Concomitant]
     Active Substance: VANCOMYCIN
     Indication: Febrile neutropenia
     Route: 042
  56. VANCOMYCIN [Concomitant]
     Active Substance: VANCOMYCIN
     Route: 042
  57. VANCOMYCIN [Concomitant]
     Active Substance: VANCOMYCIN
     Route: 042
  58. VENLAFAXINE [Concomitant]
     Active Substance: VENLAFAXINE HYDROCHLORIDE
     Indication: Depression
     Route: 048
  59. VITAMIN D [Concomitant]
     Active Substance: VITAMIN D NOS
     Indication: Routine health maintenance
     Route: 048

REACTIONS (1)
  - Sepsis [Fatal]
